FAERS Safety Report 14533742 (Version 1)
Quarter: 2018Q1

REPORT INFORMATION
  Report Type: Spontaneous
  Country: IT (occurrence: IT)
  Receive Date: 20180215
  Receipt Date: 20180215
  Transmission Date: 20180509
  Serious: Yes (Other)
  Sender: FDA-Public Use
  Company Number: IT-ACCORD-063569

PATIENT
  Age: 77 Year
  Sex: Female

DRUGS (4)
  1. DELTACORTENE [Concomitant]
     Active Substance: PREDNISONE
     Dosage: STRENGTH: 5 MG
  2. FOLINA [Concomitant]
     Active Substance: FOLIC ACID
     Dosage: STRENGTH: 5 MG
  3. METHOTREXATE. [Suspect]
     Active Substance: METHOTREXATE
     Indication: POLYMYALGIA RHEUMATICA
     Dosage: STRENGTH: 2.5 MG
     Route: 048
  4. DILZENE [Concomitant]
     Active Substance: DILTIAZEM HYDROCHLORIDE
     Dosage: STRENGTH: 60 MG

REACTIONS (3)
  - Malaise [Recovering/Resolving]
  - Abdominal pain upper [Recovering/Resolving]
  - Nausea [Recovering/Resolving]

NARRATIVE: CASE EVENT DATE: 20170909
